FAERS Safety Report 6269468-2 (Version None)
Quarter: 2009Q3

REPORT INFORMATION
  Report Type: 
  Country: None (occurrence: None)
  Receive Date: 20090715
  Receipt Date: 20080908
  Transmission Date: 20100115
  Serious: No
  Sender: FDA-Public Use
  Company Number: US-TYCO HEALTHCARE/MALLINCKRODT-T200801478

PATIENT

DRUGS (11)
  1. OXYCODONE HCL [Suspect]
     Indication: PAIN
     Dosage: 5 MG, UNK
     Route: 048
     Dates: start: 20030101, end: 20030101
  2. OXYCODONE HCL [Suspect]
     Dosage: 10 MG, UNK
     Route: 048
     Dates: start: 20030101, end: 20030101
  3. OXYCODONE HCL AND ACETAMINOPHEN [Suspect]
     Indication: PAIN
     Dosage: UNK, UNK
     Route: 048
     Dates: start: 20030301
  4. NITROGLYCERIN [Concomitant]
     Indication: CARDIAC DISORDER
     Dosage: 4 MG, PRN
     Route: 060
  5. ALBUTEROL [Concomitant]
     Indication: ASTHMA
     Dosage: UNK, PRN
  6. SOMA [Concomitant]
     Indication: MUSCLE RELAXANT THERAPY
     Dosage: 350 MG, BID
     Route: 048
     Dates: start: 20080101
  7. NASONEX [Concomitant]
     Indication: MULTIPLE ALLERGIES
     Dosage: UNK, PRN
     Route: 045
  8. SUDAFED                            /00070002/ [Concomitant]
     Indication: MULTIPLE ALLERGIES
     Dosage: UNK, QD
     Route: 048
  9. ANTIBIOTICS [Concomitant]
     Indication: SINUSITIS
  10. ANTIBIOTICS [Concomitant]
     Indication: PULMONARY CONGESTION
  11. AVONEX                             /05982701/ [Concomitant]

REACTIONS (6)
  - DRUG EFFECT DECREASED [None]
  - DRUG INEFFECTIVE [None]
  - FATIGUE [None]
  - MYDRIASIS [None]
  - THERAPEUTIC RESPONSE UNEXPECTED [None]
  - WITHDRAWAL SYNDROME [None]
